FAERS Safety Report 8225918-3 (Version None)
Quarter: 2012Q1

REPORT INFORMATION
  Report Type: 
  Country: None (occurrence: None)
  Receive Date: 20120321
  Receipt Date: 20120313
  Transmission Date: 20120608
  Serious: Yes (Other)
  Sender: FDA-Public Use
  Company Number: US-ROCHE-1022798

PATIENT
  Sex: Male
  Weight: 77.18 kg

DRUGS (2)
  1. ACCUTANE [Suspect]
     Indication: ACNE
     Route: 065
     Dates: start: 20010101, end: 20020101
  2. ACCUTANE [Suspect]
     Route: 065
     Dates: start: 20020101

REACTIONS (5)
  - GASTRIC ULCER [None]
  - COLITIS [None]
  - ANXIETY [None]
  - PEPTIC ULCER [None]
  - EMOTIONAL DISTRESS [None]
